FAERS Safety Report 19082601 (Version 1)
Quarter: 2021Q2

REPORT INFORMATION
  Report Type: Spontaneous
  Country: AT (occurrence: AT)
  Receive Date: 20210401
  Receipt Date: 20210401
  Transmission Date: 20210717
  Serious: Yes (Other)
  Sender: FDA-Public Use
  Company Number: AT-VELOXIS PHARMACEUTICALS-2021VELAT-000241

PATIENT
  Age: 30 Year
  Sex: Female

DRUGS (4)
  1. PREDNISOLONE. [Suspect]
     Active Substance: PREDNISOLONE
     Indication: IMMUNOSUPPRESSION
  2. AZATHIOPRINE [AZATHIOPRINE SODIUM] [Suspect]
     Active Substance: AZATHIOPRINE SODIUM
     Indication: IMMUNOSUPPRESSION
  3. MYCOPHENOLATE [Suspect]
     Active Substance: MYCOPHENOLIC ACID
     Indication: IMMUNOSUPPRESSION
  4. ENVARSUS XR [Suspect]
     Active Substance: TACROLIMUS
     Indication: AUTONOMIC NERVOUS SYSTEM IMBALANCE

REACTIONS (4)
  - Raynaud^s phenomenon [Unknown]
  - Intestinal pseudo-obstruction [Unknown]
  - Off label use [Unknown]
  - Renal impairment [Unknown]
